FAERS Safety Report 23869394 (Version 2)
Quarter: 2024Q2

REPORT INFORMATION
  Report Type: Report from Study
  Country: CA (occurrence: CA)
  Receive Date: 20240517
  Receipt Date: 20240621
  Transmission Date: 20240716
  Serious: Yes (Death, Hospitalization, Other)
  Sender: FDA-Public Use
  Company Number: CA-ABBVIE-5763548

PATIENT
  Age: 65 Year
  Sex: Male

DRUGS (1)
  1. GLECAPREVIR\PIBRENTASVIR [Suspect]
     Active Substance: GLECAPREVIR\PIBRENTASVIR
     Indication: Chronic hepatitis C
     Dosage: TIME INTERVAL: 0.33333333 DAYS: 100/40 MG
     Route: 048
     Dates: start: 20231116, end: 20240111

REACTIONS (10)
  - Death [Fatal]
  - Neoplasm malignant [Unknown]
  - Unevaluable event [Unknown]
  - White blood cell count decreased [Unknown]
  - Hepatic steatosis [Unknown]
  - Cellulitis [Unknown]
  - Acute kidney injury [Unknown]
  - Fall [Unknown]
  - Pneumonia [Unknown]
  - Hepatic lesion [Unknown]

NARRATIVE: CASE EVENT DATE: 20231127
